FAERS Safety Report 5726657-0 (Version None)
Quarter: 2008Q2

REPORT INFORMATION
  Report Type: 
  Country: None (occurrence: None)
  Receive Date: 20080502
  Receipt Date: 20080402
  Transmission Date: 20081010
  Serious: Yes (Other)
  Sender: FDA-Public Use
  Company Number: JP-PFIZER INC-2008037485

PATIENT
  Age: 74 Year
  Sex: Male

DRUGS (1)
  1. MIGLITOL TABLET [Suspect]
     Dosage: DAILY DOSE:100MG
     Route: 048
     Dates: start: 20071014, end: 20071207

REACTIONS (4)
  - ANOREXIA [None]
  - HEPATIC FUNCTION ABNORMAL [None]
  - NAUSEA [None]
  - RASH [None]
